FAERS Safety Report 4557996-7 (Version None)
Quarter: 2005Q1

REPORT INFORMATION
  Report Type: 
  Country: None (occurrence: None)
  Receive Date: 20050121
  Receipt Date: 20040426
  Transmission Date: 20050727
  Serious: No
  Sender: FDA-Public Use
  Company Number: US-BRISTOL-MYERS SQUIBB COMPANY-12570792

PATIENT
  Sex: Female

DRUGS (4)
  1. SERZONE [Suspect]
     Indication: MENTAL DISORDER
     Dosage: AT BEDTIME
     Route: 048
     Dates: start: 20000101
  2. WELLBUTRIN [Concomitant]
  3. ZONEGRAN [Concomitant]
  4. PROZAC [Concomitant]

REACTIONS (1)
  - CATARACT [None]
